FAERS Safety Report 24581959 (Version 1)
Quarter: 2024Q4

REPORT INFORMATION
  Report Type: Spontaneous
  Country: IT (occurrence: IT)
  Receive Date: 20241105
  Receipt Date: 20241105
  Transmission Date: 20250115
  Serious: Yes (Death, Other)
  Sender: Atnahs Healthcare
  Company Number: IT-MOLTENI-2024ML000415

PATIENT
  Age: 4 Decade
  Sex: Male

DRUGS (3)
  1. DIAZEPAM [Suspect]
     Active Substance: DIAZEPAM
     Dates: start: 2020, end: 2020
  2. METHADONE [Suspect]
     Active Substance: METHADONE HYDROCHLORIDE
     Indication: Drug diversion
     Dates: start: 2020, end: 2020
  3. MIRTAZAPINE [Suspect]
     Active Substance: MIRTAZAPINE
     Indication: Drug diversion
     Dates: start: 2020, end: 2020

REACTIONS (4)
  - Brain oedema [Fatal]
  - Pulmonary oedema [Fatal]
  - Pulmonary congestion [Fatal]
  - Toxicity to various agents [Fatal]

NARRATIVE: CASE EVENT DATE: 20200101
